FAERS Safety Report 5893518-6 (Version None)
Quarter: 2008Q3

REPORT INFORMATION
  Report Type: 
  Country: None (occurrence: None)
  Receive Date: 20080919
  Receipt Date: 20080908
  Transmission Date: 20090109
  Serious: Yes (Other)
  Sender: FDA-Public Use
  Company Number: CAR-2008-24

PATIENT
  Age: 36 Year
  Sex: Female

DRUGS (5)
  1. SUCRALFATE [Suspect]
     Indication: GASTRITIS
  2. IMIDAPRIL (IMIDAPRIL) [Suspect]
  3. LORAZEPAM [Suspect]
  4. BARNIDIPINE (BARNIDIPINE) [Suspect]
  5. AMLODIPINE (AMLODIPINE) [Suspect]

REACTIONS (4)
  - ABORTION INDUCED [None]
  - ALCOHOL USE [None]
  - DRUG EXPOSURE DURING PREGNANCY [None]
  - INTRA-UTERINE DEATH [None]
